FAERS Safety Report 9729874 (Version 2)
Quarter: 2013Q4

REPORT INFORMATION
  Report Type: Spontaneous
  Country: IT (occurrence: None)
  Receive Date: 20131203
  Receipt Date: 20131220
  Transmission Date: 20140711
  Serious: Yes (Death, Hospitalization)
  Sender: FDA-Public Use
  Company Number: AUR-APL-2013-09653

PATIENT
  Age: 70 Year
  Sex: Female
  Weight: 117 kg

DRUGS (6)
  1. METFORMIN [Suspect]
     Indication: DIABETES MELLITUS
     Dosage: 500 MG AT 8 A.M., 1,000 MG AT 1 P.M., AND 1000 MG, AT 7 PM
  2. METFORMIN [Suspect]
     Indication: RENAL IMPAIRMENT
     Dosage: 500 MG AT 8 A.M., 1,000 MG AT 1 P.M., AND 1000 MG, AT 7 PM
  3. IRBESARTAN (IRBESARTAN) [Concomitant]
  4. INSULIN (INSULIN) [Concomitant]
  5. HEPARIN (HEPARIN) [Concomitant]
  6. FUROSEMIDE (FUROSEMIDE) [Concomitant]

REACTIONS (41)
  - Ketoacidosis [None]
  - Lactic acidosis [None]
  - Toxicity to various agents [None]
  - Fall [None]
  - Hyperglycaemia [None]
  - Anaemia [None]
  - Decreased appetite [None]
  - Vomiting [None]
  - Abdominal pain [None]
  - Abdominal pain upper [None]
  - Chest pain [None]
  - Agitation [None]
  - Cardio-respiratory arrest [None]
  - Loss of consciousness [None]
  - Metabolic acidosis [None]
  - Hyperkalaemia [None]
  - Renal impairment [None]
  - Contusion [None]
  - Excoriation [None]
  - Face oedema [None]
  - Rib fracture [None]
  - Left ventricular hypertrophy [None]
  - Pulmonary oedema [None]
  - Pulmonary congestion [None]
  - Atelectasis [None]
  - Pulmonary haemorrhage [None]
  - Hepatic steatosis [None]
  - Diffuse mesangial sclerosis [None]
  - Glomerulosclerosis [None]
  - Overdose [None]
  - Hypophagia [None]
  - Oedema peripheral [None]
  - Decreased appetite [None]
  - Pruritus [None]
  - Urticaria [None]
  - Pleural effusion [None]
  - Emphysema [None]
  - Splenomegaly [None]
  - Spleen congestion [None]
  - Hepatic congestion [None]
  - Blood glucose increased [None]
